FAERS Safety Report 13360380 (Version 2)
Quarter: 2017Q2

REPORT INFORMATION
  Report Type: Spontaneous
  Country: LV (occurrence: LV)
  Receive Date: 20170322
  Receipt Date: 20170404
  Transmission Date: 20170830
  Serious: Yes (Other)
  Sender: FDA-Public Use
  Company Number: LV-PFIZER INC-2017121669

PATIENT
  Sex: Female

DRUGS (3)
  1. FLUX [Concomitant]
     Dosage: 20 MG, UNK
  2. VENORUTON [Concomitant]
     Active Substance: TROXERUTIN
     Dosage: UNK
  3. DALACIN C [Suspect]
     Active Substance: CLINDAMYCIN PHOSPHATE
     Indication: VASCULITIS
     Dosage: 2 TAB. A DAY

REACTIONS (1)
  - Angina pectoris [Recovered/Resolved]
